FAERS Safety Report 17598416 (Version 2)
Quarter: 2020Q2

REPORT INFORMATION
  Report Type: Report from Study
  Country: US (occurrence: US)
  Receive Date: 20200330
  Receipt Date: 20200407
  Transmission Date: 20200713
  Serious: Yes (Other)
  Sender: FDA-Public Use
  Company Number: US-MYLANLABS-2020M1032945

PATIENT
  Age: 15 Year
  Sex: Female

DRUGS (15)
  1. CYCLOPHOSPHAMIDE. [Suspect]
     Active Substance: CYCLOPHOSPHAMIDE
     Indication: BONE MARROW CONDITIONING REGIMEN
     Dosage: ON DAY -11 THROUGH DAY -8; DOSAGE CAP OF 200 MG/DAY
     Route: 065
  2. URSODIOL. [Concomitant]
     Active Substance: URSODIOL
     Indication: PROPHYLAXIS
     Dosage: ON DAYS -11 THROUGH +100
     Route: 065
  3. PENTOSTATIN. [Suspect]
     Active Substance: PENTOSTATIN
     Indication: BONE MARROW CONDITIONING REGIMEN
     Dosage: ON DAY -11 AND DAY -7
     Route: 042
  4. BUSULFAN. [Suspect]
     Active Substance: BUSULFAN
     Indication: BONE MARROW CONDITIONING REGIMEN
     Dosage: 2 DAYS OF PHARMACOKINETICALLY DOSED IV BUSULFAN WITH AN AREA UNDER THE CURVE TARGET OF 4600..
     Route: 042
  5. CYCLOPHOSPHAMIDE. [Suspect]
     Active Substance: CYCLOPHOSPHAMIDE
     Indication: BONE MARROW CONDITIONING REGIMEN
     Dosage: 50 MILLIGRAM/KILOGRAM, QD
     Route: 042
  6. SIROLIMUS. [Suspect]
     Active Substance: SIROLIMUS
     Dosage: MAINTENANCE DOSE STARTING DAY +6, CONTINUED THROUGH DAY +180, THEN STOPPED WITHOUT TAPER
     Route: 048
  7. LEVETIRACETAM. [Concomitant]
     Active Substance: LEVETIRACETAM
     Indication: SEIZURE PROPHYLAXIS
     Dosage: ON DAYS THROUGH -4 TO -1
     Route: 048
  8. MYCOPHENOLATE MOFETIL. [Suspect]
     Active Substance: MYCOPHENOLATE MOFETIL
     Indication: PROPHYLAXIS AGAINST GRAFT VERSUS HOST DISEASE
     Dosage: ON DAYS +5 THROUGH +35; THREE TIMES DAILY, MAXIMUM 1000 MG/DOSE
     Route: 065
     Dates: start: 20160601, end: 20160703
  9. LEUPROLIDE                         /00726901/ [Concomitant]
     Active Substance: LEUPROLIDE
     Indication: THERAPEUTIC OVARIAN SUPPRESSION
     Dosage: PRIOR TO DAY -11
     Route: 065
  10. CLONAZEPAM. [Concomitant]
     Active Substance: CLONAZEPAM
     Indication: SEIZURE PROPHYLAXIS
     Dosage: ON DAYS THROUGH -4 TO -1
     Route: 048
  11. ACYCLOVIR                          /00587301/ [Concomitant]
     Active Substance: ACYCLOVIR
     Indication: PROPHYLAXIS
     Dosage: ON DAYS -11 THROUGH +2 YEARS
     Route: 065
  12. MESNA. [Suspect]
     Active Substance: MESNA
     Indication: PROPHYLAXIS AGAINST GRAFT VERSUS HOST DISEASE
     Dosage: ON DAYS +3 AND +4
     Route: 042
     Dates: start: 20160530, end: 20160531
  13. SIROLIMUS. [Suspect]
     Active Substance: SIROLIMUS
     Indication: PROPHYLAXIS AGAINST GRAFT VERSUS HOST DISEASE
     Dosage: LOADING DOSE ON DAY +5
     Route: 048
  14. CYCLOPHOSPHAMIDE. [Suspect]
     Active Substance: CYCLOPHOSPHAMIDE
     Indication: PROPHYLAXIS AGAINST GRAFT VERSUS HOST DISEASE
  15. CYCLOPHOSPHAMIDE. [Suspect]
     Active Substance: CYCLOPHOSPHAMIDE
     Indication: PROPHYLAXIS AGAINST GRAFT VERSUS HOST DISEASE

REACTIONS (1)
  - Ovarian failure [Not Recovered/Not Resolved]
